FAERS Safety Report 4319873-6 (Version None)
Quarter: 2004Q1

REPORT INFORMATION
  Report Type: 
  Country: None (occurrence: None)
  Receive Date: 20040319
  Receipt Date: 20040310
  Transmission Date: 20041129
  Serious: Yes (Other)
  Sender: FDA-Public Use
  Company Number: PHRM2004FR01162

PATIENT
  Age: 63 Year
  Sex: Female

DRUGS (3)
  1. COTAREG [Suspect]
     Route: 048
  2. INDAPAMIDE [Concomitant]
  3. CALCIUM CHANNEL BLOCKERS [Concomitant]

REACTIONS (1)
  - MYOCARDIAL INFARCTION [None]
